FAERS Safety Report 15793458 (Version 2)
Quarter: 2020Q1

REPORT INFORMATION
  Report Type: Spontaneous
  Country: US (occurrence: US)
  Receive Date: 20190107
  Receipt Date: 20200224
  Transmission Date: 20200409
  Serious: No
  Sender: FDA-Public Use
  Company Number: US-PFIZER INC-2019005482

PATIENT
  Age: 64 Year
  Sex: Male
  Weight: 79 kg

DRUGS (7)
  1. RAPAMUNE [Suspect]
     Active Substance: SIROLIMUS
     Indication: CHRONIC KIDNEY DISEASE
  2. RAPAMUNE [Suspect]
     Active Substance: SIROLIMUS
     Indication: DEPRESSION
  3. RAPAMUNE [Suspect]
     Active Substance: SIROLIMUS
     Indication: SECONDARY HYPERTENSION
  4. RAPAMUNE [Suspect]
     Active Substance: SIROLIMUS
     Indication: LUNG TRANSPLANT REJECTION
  5. RAPAMUNE [Suspect]
     Active Substance: SIROLIMUS
     Indication: ACUTE KIDNEY INJURY
  6. RAPAMUNE [Suspect]
     Active Substance: SIROLIMUS
     Indication: IMMUNE SYSTEM DISORDER
  7. RAPAMUNE [Suspect]
     Active Substance: SIROLIMUS
     Indication: LUNG TRANSPLANT
     Dosage: 1.5 MG, 1X/DAY [THREE TABLETS EVERY MORNING]
     Route: 048

REACTIONS (6)
  - Headache [Unknown]
  - Product use in unapproved indication [Unknown]
  - Tremor [Unknown]
  - Hypertension [Unknown]
  - Dyspnoea [Unknown]
  - Off label use [Unknown]
